FAERS Safety Report 5087312-6 (Version None)
Quarter: 2006Q3

REPORT INFORMATION
  Report Type: 
  Country: None (occurrence: None)
  Receive Date: 20060824
  Receipt Date: 20060817
  Transmission Date: 20061208
  Serious: Yes (Life-Threatening)
  Sender: FDA-Public Use
  Company Number: JP-BAYER-200610973BYL

PATIENT
  Age: 82 Year
  Sex: Female

DRUGS (2)
  1. AVELOX [Suspect]
     Indication: PNEUMONIA
     Dosage: TOTAL DAILY DOSE: 400 MG  UNIT DOSE: 400 MG
     Route: 048
     Dates: start: 20060811, end: 20060814
  2. SULPERAZON [Concomitant]
     Indication: PNEUMONIA
     Route: 041

REACTIONS (7)
  - BLOOD PRESSURE DECREASED [None]
  - CYANOSIS [None]
  - FLUSHING [None]
  - FOAMING AT MOUTH [None]
  - HYPOGLYCAEMIA [None]
  - PERIPHERAL COLDNESS [None]
  - SWELLING FACE [None]
